FAERS Safety Report 7880794-3 (Version None)
Quarter: 2011Q4

REPORT INFORMATION
  Report Type: 
  Country: None (occurrence: None)
  Receive Date: 20111101
  Receipt Date: 20111031
  Transmission Date: 20120403
  Serious: Yes (Other)
  Sender: FDA-Public Use
  Company Number: US-PFIZER INC-2011253935

PATIENT
  Sex: Male

DRUGS (5)
  1. LANTUS [Concomitant]
     Indication: TYPE 2 DIABETES MELLITUS
     Dosage: 10 IU, 1X/DAY
     Dates: start: 20110805
  2. MEDROL [Suspect]
     Indication: IMMUNE SYSTEM DISORDER
     Dosage: 4 MG, UNK
     Dates: start: 20110914
  3. BENADRYL [Suspect]
     Indication: IMMUNE SYSTEM DISORDER
     Dosage: UNK
     Dates: start: 20110914
  4. NOVOLOG [Concomitant]
     Dosage: UNK
  5. LANTUS [Concomitant]
     Dosage: 20 IU, DAILY

REACTIONS (1)
  - BLOOD GLUCOSE INCREASED [None]
